FAERS Safety Report 7883968-0 (Version None)
Quarter: 2011Q4

REPORT INFORMATION
  Report Type: 
  Country: None (occurrence: None)
  Receive Date: 20111102
  Receipt Date: 20111018
  Transmission Date: 20120403
  Serious: Yes (Hospitalization)
  Sender: FDA-Public Use
  Company Number: PHHO2011JP17442

PATIENT
  Sex: Male
  Weight: 55 kg

DRUGS (6)
  1. DIOVAN [Suspect]
     Dosage: UNK
     Route: 048
     Dates: start: 20111017
  2. DIOVAN [Suspect]
     Indication: HYPERTENSION
     Dosage: UNK
     Route: 048
     Dates: end: 20111012
  3. DEXTROMETHORPHAN HYDROBROMIDE [Concomitant]
     Dosage: UNK
  4. MUCODYNE [Concomitant]
     Indication: CHRONIC OBSTRUCTIVE PULMONARY DISEASE
     Dosage: UNK
     Route: 048
  5. QVA149 [Suspect]
     Indication: CHRONIC OBSTRUCTIVE PULMONARY DISEASE
     Dosage: UNK
     Dates: start: 20110323
  6. LANSOPRAZOLE [Concomitant]
     Indication: GASTROOESOPHAGEAL REFLUX DISEASE
     Dosage: UNK
     Route: 048

REACTIONS (2)
  - BRONCHOPNEUMONIA [None]
  - DEHYDRATION [None]
